FAERS Safety Report 7627516-9 (Version None)
Quarter: 2011Q3

REPORT INFORMATION
  Report Type: 
  Country: None (occurrence: None)
  Receive Date: 20110721
  Receipt Date: 20110713
  Transmission Date: 20111222
  Serious: Yes (Other)
  Sender: FDA-Public Use
  Company Number: US-ABBOTT-11P-163-0725326-00

PATIENT
  Sex: Male
  Weight: 132.11 kg

DRUGS (6)
  1. HUMIRA [Suspect]
     Indication: CROHN'S DISEASE
     Route: 058
     Dates: start: 20090625
  2. PROTONIX [Concomitant]
     Indication: PRODUCT USED FOR UNKNOWN INDICATION
     Dosage: 40 MG DAILY
  3. LEXAPRO [Concomitant]
     Indication: DEPRESSION
     Dosage: 20 MG DAILY
     Route: 048
  4. LIALDA [Concomitant]
     Indication: PRODUCT USED FOR UNKNOWN INDICATION
  5. NEXIUM [Concomitant]
     Indication: GASTROOESOPHAGEAL REFLUX DISEASE
     Route: 048
  6. TESTOSTERONE [Concomitant]
     Indication: BLOOD TESTOSTERONE DECREASED
     Dosage: 200/CC; 1CC MONTHLY
     Route: 030
     Dates: start: 20110501

REACTIONS (13)
  - DEPRESSION [None]
  - ANXIETY [None]
  - LIVER FUNCTION TEST ABNORMAL [None]
  - BLINDNESS [None]
  - SINUS CONGESTION [None]
  - HYPOAESTHESIA [None]
  - HEPATIC STEATOSIS [None]
  - PARAESTHESIA [None]
  - HEADACHE [None]
  - VISUAL IMPAIRMENT [None]
  - AMNESIA [None]
  - MENTAL IMPAIRMENT [None]
  - VISION BLURRED [None]
